FAERS Safety Report 10508888 (Version 1)
Quarter: 2014Q3

REPORT INFORMATION
  Report Type: Spontaneous
  Country: US (occurrence: None)
  Receive Date: 20140915
  Receipt Date: 20140915
  Transmission Date: 20150326
  Serious: Yes (Other)
  Sender: FDA-Public Use
  Company Number: JPI-P-033269

PATIENT
  Age: 81 Year
  Sex: Female
  Weight: 90.2 kg

DRUGS (1)
  1. XYREM [Suspect]
     Active Substance: SODIUM OXYBATE
     Indication: PRODUCT USED FOR UNKNOWN INDICATION
     Route: 048
     Dates: start: 200209

REACTIONS (4)
  - Muscle spasms [None]
  - Sleep apnoea syndrome [None]
  - Condition aggravated [None]
  - Hypertension [None]
